FAERS Safety Report 6860663-8 (Version None)
Quarter: 2010Q3

REPORT INFORMATION
  Report Type: 
  Country: None (occurrence: None)
  Receive Date: 20100720
  Receipt Date: 20070614
  Transmission Date: 20110219
  Serious: No
  Sender: FDA-Public Use
  Company Number: US-PFIZER INC-2007049944

PATIENT
  Sex: Female
  Weight: 58.1 kg

DRUGS (5)
  1. CHANTIX [Suspect]
     Indication: SMOKING CESSATION THERAPY
     Route: 048
     Dates: start: 20070612
  2. VYTORIN [Suspect]
     Indication: BLOOD CHOLESTEROL INCREASED
     Dates: start: 20070612, end: 20070613
  3. ZOLOFT [Concomitant]
  4. ORAL CONTRACEPTIVE NOS [Concomitant]
  5. ESTROGENS [Concomitant]

REACTIONS (3)
  - DIZZINESS [None]
  - MALAISE [None]
  - NAUSEA [None]
